FAERS Safety Report 11944381 (Version 1)
Quarter: 2016Q1

REPORT INFORMATION
  Report Type: Spontaneous
  Country: IT (occurrence: IT)
  Receive Date: 20160125
  Receipt Date: 20160125
  Transmission Date: 20160526
  Serious: Yes (Other)
  Sender: FDA-Public Use
  Company Number: IT-HORIZON-PRE-0009-2016

PATIENT
  Age: 20 Year
  Sex: Male
  Weight: 78.4 kg

DRUGS (9)
  1. BETHAMETHASONE [Suspect]
     Active Substance: CLOTRIMAZOLE
     Indication: IMMUNE TOLERANCE INDUCTION
     Dosage: 4 MG TWICE DAILY
  2. FENTANYL. [Concomitant]
     Active Substance: FENTANYL
     Dosage: 0.05 MG
  3. PROPOFOL. [Concomitant]
     Active Substance: PROPOFOL
     Dosage: 200 MG
  4. CIPROFLOXACIN. [Concomitant]
     Active Substance: CIPROFLOXACIN
     Dosage: 200 MG
     Route: 042
  5. ROCURONIUM BROMIDE. [Suspect]
     Active Substance: ROCURONIUM BROMIDE
     Indication: ANAESTHESIA
     Dosage: 0.6 MG/KG; ADDITIONAL DOSE OF 50 MG
  6. REMIFENTANIL [Concomitant]
     Active Substance: REMIFENTANIL
     Dosage: 0.11 ?G/KG/MINUTE
  7. PREDNISONE. [Suspect]
     Active Substance: PREDNISONE
     Indication: PRODUCT USED FOR UNKNOWN INDICATION
     Dosage: 30 MG DAILY, LAST DOSE 5 MG
     Route: 048
  8. MIDAZOLAM [Concomitant]
     Active Substance: MIDAZOLAM\MIDAZOLAM HYDROCHLORIDE
  9. ATROPINE. [Concomitant]
     Active Substance: ATROPINE
     Dosage: 0.7 MG

REACTIONS (2)
  - Drug interaction [Recovered/Resolved]
  - Drug resistance [Recovered/Resolved]
